FAERS Safety Report 14278888 (Version 1)
Quarter: 2017Q4

REPORT INFORMATION
  Report Type: Spontaneous
  Country: CH (occurrence: CH)
  Receive Date: 20171212
  Receipt Date: 20171212
  Transmission Date: 20180321
  Serious: Yes (Other)
  Sender: FDA-Public Use
  Company Number: CH-SA-2017SA241309

PATIENT
  Age: 0 Day
  Sex: Female
  Weight: 3.3 kg

DRUGS (7)
  1. HUMALOG [Suspect]
     Active Substance: INSULIN LISPRO
     Dosage: FROM 2013, 14-15 LU 3X / D THEN 18 LU 3X / D, TREATMENT TAKEN IN ANY CASE UNTIL DELIVERY
     Route: 064
  2. HUMALOG [Suspect]
     Active Substance: INSULIN LISPRO
     Dosage: 14-15 LU
     Route: 064
     Dates: start: 2013
  3. TRESIBA [Suspect]
     Active Substance: INSULIN DEGLUDEC
     Route: 064
     Dates: start: 2014
  4. METFORMIN [Suspect]
     Active Substance: METFORMIN HYDROCHLORIDE
     Route: 064
     Dates: start: 2013, end: 20170417
  5. TRANDATE [Suspect]
     Active Substance: LABETALOL HYDROCHLORIDE
     Route: 064
     Dates: start: 20170417
  6. COAPROVEL [Suspect]
     Active Substance: HYDROCHLOROTHIAZIDE\IRBESARTAN
     Route: 064
     Dates: start: 2016, end: 20170417
  7. TRESIBA [Suspect]
     Active Substance: INSULIN DEGLUDEC
     Dosage: FROM 2014, 24 IU 1X / D THEN 14-0-23 2X / D, TREATMENT TAKEN IN ANY CASE UNTIL DELIVERY
     Route: 064

REACTIONS (2)
  - Foetal exposure during pregnancy [Unknown]
  - Hypoglycaemia neonatal [Recovered/Resolved]

NARRATIVE: CASE EVENT DATE: 20170920
